FAERS Safety Report 7714674-0 (Version None)
Quarter: 2011Q3

REPORT INFORMATION
  Report Type: 
  Country: None (occurrence: None)
  Receive Date: 20110822
  Receipt Date: 20110804
  Transmission Date: 20111222
  Serious: Yes (Death, Life-Threatening, Other)
  Sender: FDA-Public Use
  Company Number: 2011MA011480

PATIENT
  Age: 24 Year

DRUGS (4)
  1. METHADONE HCL [Suspect]
     Dosage: 1.1 MG/L
  2. NORDIAZEPAM (NO PREF. NAME) [Suspect]
  3. AMITRIPTYLINE HCL [Suspect]
  4. OXAZEPAM [Suspect]

REACTIONS (9)
  - NEEDLE TRACK MARKS [None]
  - PULMONARY CONGESTION [None]
  - TOXICITY TO VARIOUS AGENTS [None]
  - SPLEEN CONGESTION [None]
  - SNORING [None]
  - PULMONARY OEDEMA [None]
  - UNRESPONSIVE TO STIMULI [None]
  - VOMITING [None]
  - MULTIPLE DRUG OVERDOSE [None]
